FAERS Safety Report 9774848 (Version 1)
Quarter: 2013Q4

REPORT INFORMATION
  Report Type: Spontaneous
  Country: US (occurrence: None)
  Receive Date: 20131219
  Receipt Date: 20131219
  Transmission Date: 20140711
  Serious: No
  Sender: FDA-Public Use
  Company Number: None

PATIENT
  Age: 64 Year
  Sex: Female
  Weight: 70.31 kg

DRUGS (11)
  1. XELJANZ (TOFACITINIB) [Suspect]
     Indication: RHEUMATOID ARTHRITIS
     Route: 048
     Dates: start: 20130927, end: 20131103
  2. MEDROL [Concomitant]
  3. METOPROLOL [Concomitant]
  4. COUMADIN [Concomitant]
  5. VIT. D [Concomitant]
  6. MULTI-VIT [Concomitant]
  7. VIT. C [Concomitant]
  8. IRON [Concomitant]
  9. FISH OIL [Concomitant]
  10. TYLENOL [Concomitant]
  11. CALCIUM [Concomitant]

REACTIONS (9)
  - Rhinorrhoea [None]
  - Upper-airway cough syndrome [None]
  - Decreased appetite [None]
  - Nasal congestion [None]
  - Sinus headache [None]
  - Ear discomfort [None]
  - Burning sensation [None]
  - Ear pain [None]
  - Dizziness [None]
